FAERS Safety Report 5332462-X (Version None)
Quarter: 2007Q1

REPORT INFORMATION
  Report Type: 
  Country: None (occurrence: None)
  Receive Date: 20070306
  Receipt Date: 20060425
  Transmission Date: 20070707
  Serious: Yes (Hospitalization)
  Sender: FDA-Public Use
  Company Number: A03200602669

PATIENT
  Age: 62 Year
  Sex: Female
  Weight: 63.49 kg

DRUGS (15)
  1. PLAVIX [Suspect]
     Indication: STENT PLACEMENT
     Dosage: 75 MG QD - ORAL
     Route: 048
     Dates: start: 20060111, end: 20060117
  2. ASPIRIN [Suspect]
     Dosage: 81 MG QD - ORAL
     Route: 048
     Dates: end: 20060117
  3. METFORMIN HCL [Concomitant]
  4. GLYBURIDE [Concomitant]
  5. LISINOPRIL [Concomitant]
  6. OMEPRAZOLE [Concomitant]
  7. DOXAZOSIN MESYLATE [Concomitant]
  8. ALPRALZOLAM [Concomitant]
  9. LOVASTATIN [Concomitant]
  10. DILTIAZEM [Concomitant]
  11. ATORVASTATIN [Concomitant]
  12. ZOLPIDEM [Concomitant]
  13. ACETYLSALICYLIC ACID SRT [Concomitant]
  14. IBUPROFEN [Concomitant]
  15. VICODIN [Concomitant]

REACTIONS (10)
  - BLOOD GLUCOSE INCREASED [None]
  - BLOOD URINE PRESENT [None]
  - DUODENAL ULCER HAEMORRHAGE [None]
  - FAECES DISCOLOURED [None]
  - HAEMORRHAGIC ANAEMIA [None]
  - HYPOTENSION [None]
  - METABOLIC ACIDOSIS [None]
  - NAUSEA [None]
  - RENAL FAILURE ACUTE [None]
  - VOMITING [None]
